FAERS Safety Report 20510946 (Version 1)
Quarter: 2022Q1

REPORT INFORMATION
  Report Type: Spontaneous
  Country: AU (occurrence: AU)
  Receive Date: 20220224
  Receipt Date: 20220224
  Transmission Date: 20220424
  Serious: Yes (Death, Life-Threatening, Hospitalization, Other)
  Sender: FDA-Public Use
  Company Number: None

PATIENT
  Age: 67 Year
  Sex: Male

DRUGS (13)
  1. MYCOPHENOLATE MOFETIL [Suspect]
     Active Substance: MYCOPHENOLATE MOFETIL
     Indication: Renal transplant
     Dosage: 750 MILLIGRAM, PER DAY
     Route: 065
  2. MYCOPHENOLATE MOFETIL [Suspect]
     Active Substance: MYCOPHENOLATE MOFETIL
     Dosage: 500 MILLIGRAM, PER DAY
     Route: 065
     Dates: end: 2020
  3. MYCOPHENOLATE MOFETIL [Suspect]
     Active Substance: MYCOPHENOLATE MOFETIL
     Dosage: 500 MILLIGRAM, EVERY 12 HRS (TWO TIMES A DAY)
     Route: 065
     Dates: start: 2020
  4. PREDNISOLONE [Suspect]
     Active Substance: PREDNISOLONE
     Indication: Renal transplant
     Dosage: 6 MILLIGRAM, DALY
     Route: 065
  5. TACROLIMUS [Suspect]
     Active Substance: TACROLIMUS
     Indication: Renal transplant
     Dosage: 5 MILLIGRAM, DAILY
     Route: 065
     Dates: end: 2020
  6. TACROLIMUS [Suspect]
     Active Substance: TACROLIMUS
     Dosage: UNK, (REDUCING TACROLIMUS TARGET LEVELS)
     Route: 065
     Dates: start: 2020
  7. IRBESARTAN [Concomitant]
     Active Substance: IRBESARTAN
     Indication: Product used for unknown indication
     Dosage: 37.5 MILLIGRAM
     Route: 065
  8. CHOLECALCIFEROL [Concomitant]
     Active Substance: CHOLECALCIFEROL
     Indication: Product used for unknown indication
     Dosage: UNK
     Route: 065
  9. FISH OIL [Concomitant]
     Active Substance: FISH OIL
     Indication: Product used for unknown indication
     Dosage: UNK
     Route: 065
  10. HORSERADISH, GARLIC + C [Concomitant]
     Indication: Product used for unknown indication
     Dosage: UNK
     Route: 065
  11. MAGNESIUM ASPARTATE [Concomitant]
     Active Substance: MAGNESIUM ASPARTATE
     Indication: Product used for unknown indication
     Dosage: UNK
     Route: 065
  12. ATENOLOL [Concomitant]
     Active Substance: ATENOLOL
     Indication: Product used for unknown indication
     Dosage: 25 MILLIGRAM PER DAY
     Route: 065
  13. VITAMIN B3 [Concomitant]
     Active Substance: NIACIN
     Indication: Product used for unknown indication
     Dosage: UNK
     Route: 065

REACTIONS (11)
  - Meningitis cryptococcal [Fatal]
  - Parkinsonism [Unknown]
  - Dementia [Unknown]
  - Cerebral small vessel ischaemic disease [Unknown]
  - Inappropriate antidiuretic hormone secretion [Unknown]
  - Peripheral sensory neuropathy [Unknown]
  - Hyponatraemia [Unknown]
  - Encephalopathy [Unknown]
  - Fall [Unknown]
  - Cerebral infarction [Unknown]
  - Weight decreased [Unknown]

NARRATIVE: CASE EVENT DATE: 20190101
